FAERS Safety Report 15699641 (Version 1)
Quarter: 2018Q4

REPORT INFORMATION
  Report Type: Spontaneous
  Country: US (occurrence: US)
  Receive Date: 20181207
  Receipt Date: 20181207
  Transmission Date: 20190205
  Serious: Yes (Other)
  Sender: FDA-Public Use
  Company Number: None

PATIENT
  Age: 62 Year
  Sex: Female
  Weight: 79.65 kg

DRUGS (2)
  1. METFORMIN HCL 1,00 MG TABLET [Concomitant]
  2. ATORVASTATIN 10MG [Suspect]
     Active Substance: ATORVASTATIN
     Indication: BLOOD CHOLESTEROL
     Dosage: ?          QUANTITY:1 TABLET(S);?
     Dates: start: 20181015, end: 20181108

REACTIONS (3)
  - Headache [None]
  - Visual impairment [None]
  - Ocular discomfort [None]

NARRATIVE: CASE EVENT DATE: 20181015
